FAERS Safety Report 8505967-8 (Version None)
Quarter: 2012Q3

REPORT INFORMATION
  Report Type: 
  Country: None (occurrence: None)
  Receive Date: 20120712
  Receipt Date: 20120701
  Transmission Date: 20120928
  Serious: Yes (Congenital Anomaly)
  Sender: FDA-Public Use
  Company Number: US-VIIV HEALTHCARE LIMITED-A0983997A

PATIENT
  Sex: Female
  Weight: 3.1 kg

DRUGS (2)
  1. TRIZIVIR [Suspect]
     Indication: ANTIRETROVIRAL THERAPY
     Dosage: 2TAB PER DAY
     Route: 064
  2. RETROVIR [Suspect]
     Indication: ANTIVIRAL PROPHYLAXIS
     Dosage: 630MG PER DAY
     Route: 064
     Dates: start: 20111208, end: 20111208

REACTIONS (17)
  - ULTRASOUND ANTENATAL SCREEN [None]
  - TRICUSPID VALVE INCOMPETENCE [None]
  - LOW SET EARS [None]
  - FOETAL EXPOSURE DURING PREGNANCY [None]
  - HEART DISEASE CONGENITAL [None]
  - TRICUSPID VALVE DISEASE [None]
  - CONGENITAL PULMONARY ARTERY ANOMALY [None]
  - FOETAL CYSTIC HYGROMA [None]
  - CEREBRAL VENTRICLE DILATATION [None]
  - FOETAL CHROMOSOME ABNORMALITY [None]
  - RIGHT ATRIAL DILATATION [None]
  - CONGENITAL NOSE MALFORMATION [None]
  - PTERYGIUM COLLI [None]
  - CONGENITAL CARDIOVASCULAR ANOMALY [None]
  - CONGENITAL ANOMALY [None]
  - RIGHT VENTRICULAR HYPERTROPHY [None]
  - CONGENITAL PULMONARY VALVE ATRESIA [None]
